FAERS Safety Report 11874882 (Version 4)
Quarter: 2016Q1

REPORT INFORMATION
  Report Type: Spontaneous
  Country: CN (occurrence: CN)
  Receive Date: 20151229
  Receipt Date: 20160331
  Transmission Date: 20160526
  Serious: Yes (Hospitalization)
  Sender: FDA-Public Use
  Company Number: CN-ASTRAZENECA-2015SF30039

PATIENT
  Age: 59 Year
  Sex: Female
  Weight: 67 kg

DRUGS (21)
  1. NOVORAPID [Concomitant]
     Active Substance: INSULIN ASPART
     Dosage: 30R 20 U IN THE MORNING, 12U IN THE EVENING, IH
  2. ADALAT [Concomitant]
     Active Substance: NIFEDIPINE
     Indication: BLOOD PRESSURE INADEQUATELY CONTROLLED
     Route: 048
  3. BETALOC [Concomitant]
     Active Substance: METOPROLOL TARTRATE
     Indication: HEART RATE ABNORMAL
     Route: 048
  4. NOVOLIN [Concomitant]
     Active Substance: INSULIN HUMAN
     Dosage: 30R
  5. BETALOC [Concomitant]
     Active Substance: METOPROLOL TARTRATE
     Indication: HEART RATE ABNORMAL
     Route: 048
  6. GLYCYRRHIZINATE POTASSIUM [Concomitant]
     Active Substance: GLYCYRRHIZIN
     Indication: LIVER DISORDER
     Route: 048
  7. BYETTA [Suspect]
     Active Substance: EXENATIDE
     Indication: DIABETES MELLITUS
     Route: 058
     Dates: start: 20151109, end: 20151209
  8. COZAAR [Concomitant]
     Active Substance: LOSARTAN POTASSIUM
     Indication: BLOOD PRESSURE INADEQUATELY CONTROLLED
     Route: 048
  9. CLOPIDOGREL SULFATE [Concomitant]
     Active Substance: CLOPIDOGREL BISULFATE
     Indication: PLATELET AGGREGATION ABNORMAL
     Route: 048
  10. RABEPRAZOLE [Concomitant]
     Active Substance: RABEPRAZOLE
     Indication: GASTRIC DISORDER
     Route: 048
  11. VINPOCETINE [Concomitant]
     Active Substance: VINPOCETINE
     Indication: CARDIOVASCULAR DISORDER
  12. HERBAL NOS [Concomitant]
     Active Substance: HERBALS
     Indication: DIABETES MELLITUS
  13. NIFEDIPINE. [Concomitant]
     Active Substance: NIFEDIPINE
     Indication: HYPERTENSION
  14. EUTHYROX [Concomitant]
     Active Substance: LEVOTHYROXINE SODIUM
     Indication: THYROXINE ABNORMAL
     Dosage: 75 UG, QD, PO (HALF AN HOUR PRIOR TO THE MEAL)
     Route: 048
  15. KAISHI [Concomitant]
     Indication: CARDIOVASCULAR DISORDER
  16. BYETTA [Suspect]
     Active Substance: EXENATIDE
     Indication: DIABETES MELLITUS
     Route: 058
     Dates: start: 20151210, end: 20151221
  17. LEVEMIR [Concomitant]
     Active Substance: INSULIN DETEMIR
     Indication: BLOOD GLUCOSE ABNORMAL
     Route: 058
  18. RABEPRAZOLE [Concomitant]
     Active Substance: RABEPRAZOLE
     Indication: ACID BASE BALANCE ABNORMAL
     Route: 048
  19. LOSARTAN. [Concomitant]
     Active Substance: LOSARTAN
     Indication: HYPERTENSION
  20. ACIPIMOX [Concomitant]
     Active Substance: ACIPIMOX
     Indication: LIPIDS ABNORMAL
  21. MOSAPRIDE CITRATE [Concomitant]
     Active Substance: MOSAPRIDE CITRATE
     Indication: GASTROINTESTINAL MOTILITY DISORDER
     Dosage: 5 MG, TID, PO (HALF AN HOUR PRIOR TO THE MEAL)
     Route: 048

REACTIONS (5)
  - Glomerular filtration rate decreased [Unknown]
  - Blood creatinine increased [Recovered/Resolved]
  - Muscular weakness [Unknown]
  - Urine output decreased [Unknown]
  - Proteinuria [Unknown]

NARRATIVE: CASE EVENT DATE: 201512
